FAERS Safety Report 4519538-1 (Version None)
Quarter: 2004Q4

REPORT INFORMATION
  Report Type: 
  Country: None (occurrence: None)
  Receive Date: 20041202
  Receipt Date: 20041117
  Transmission Date: 20050328
  Serious: No
  Sender: FDA-Public Use
  Company Number: FRP04000962

PATIENT
  Age: 71 Year
  Sex: Female

DRUGS (1)
  1. ACTONEL [Suspect]
     Dosage: 35 MG, 1/WEEK, ORAL
     Route: 048
     Dates: end: 20040601

REACTIONS (3)
  - FOREIGN BODY TRAUMA [None]
  - RHINORRHOEA [None]
  - SALIVARY HYPERSECRETION [None]
